FAERS Safety Report 12909905 (Version 2)
Quarter: 2017Q1

REPORT INFORMATION
  Report Type: Spontaneous
  Country: AU (occurrence: AU)
  Receive Date: 20161104
  Receipt Date: 20170130
  Transmission Date: 20170428
  Serious: Yes (Death, Life-Threatening, Hospitalization, Disabling, Other)
  Sender: FDA-Public Use
  Company Number: AU-ACCORD-045223

PATIENT
  Age: 67 Year
  Sex: Male

DRUGS (1)
  1. METHOTREXATE. [Suspect]
     Active Substance: METHOTREXATE
     Indication: RHEUMATOID ARTHRITIS
     Route: 048

REACTIONS (9)
  - Neutropenia [Recovering/Resolving]
  - Cardio-respiratory arrest [Fatal]
  - Epstein-Barr virus infection [Fatal]
  - Haemorrhage [Fatal]
  - Bone marrow toxicity [Recovering/Resolving]
  - Mucocutaneous ulceration [Fatal]
  - Vasculitis necrotising [Unknown]
  - Candida infection [Unknown]
  - Aspiration [Fatal]
